FAERS Safety Report 8529205 (Version 2)
Quarter: 2012Q4

REPORT INFORMATION
  Report Type: 
  Country: US (occurrence: US)
  Receive Date: 20120425
  Receipt Date: 20120830
  Transmission Date: 20130627
  Serious: Yes (Hospitalization)
  Sender: FDA-Public Use
  Company Number: US-BAYER-2012-039409

PATIENT
  Age: 14 Year
  Sex: Female
  Weight: 63.49 kg

DRUGS (2)
  1. YAZ [Suspect]
     Indication: ENDOMETRIOSIS
     Dosage: UNK
     Dates: start: 200702
  2. YAZ [Suspect]
     Indication: MENSTRUAL DISORDER

REACTIONS (3)
  - Cholecystectomy [None]
  - Injury [None]
  - Pain [None]
